FAERS Safety Report 7563938-2 (Version None)
Quarter: 2011Q2

REPORT INFORMATION
  Report Type: 
  Country: None (occurrence: None)
  Receive Date: 20110622
  Receipt Date: 20110614
  Transmission Date: 20111010
  Serious: Yes (Death)
  Sender: FDA-Public Use
  Company Number: JP-UCBSA-034359

PATIENT
  Sex: Male

DRUGS (7)
  1. KEPPRA [Suspect]
     Indication: EPILEPSY
     Route: 048
     Dates: start: 20110509, end: 20110529
  2. DEPAKENE [Concomitant]
     Indication: EPILEPSY
     Route: 048
     Dates: start: 20100106, end: 20110519
  3. DEPAKENE [Concomitant]
     Route: 048
     Dates: start: 20110520, end: 20110529
  4. CELECOXIB [Concomitant]
     Route: 048
     Dates: start: 20101006, end: 20110529
  5. ASPIRIN [Concomitant]
     Route: 048
     Dates: start: 20090902, end: 20110529
  6. NORVASC [Concomitant]
     Route: 048
     Dates: start: 20091014, end: 20110529
  7. OLMESARTAN MEDOXOMIL [Concomitant]
     Route: 048
     Dates: start: 20090902, end: 20110529

REACTIONS (4)
  - DROWNING [None]
  - CARDIO-RESPIRATORY ARREST [None]
  - CONVULSION [None]
  - LOSS OF CONSCIOUSNESS [None]
